FAERS Safety Report 4330241-3 (Version None)
Quarter: 2004Q1

REPORT INFORMATION
  Report Type: 
  Country: None (occurrence: None)
  Receive Date: 20040329
  Receipt Date: 20040312
  Transmission Date: 20041129
  Serious: Yes (Death, Other)
  Sender: FDA-Public Use
  Company Number: 2004017621

PATIENT
  Age: 76 Year
  Sex: Male

DRUGS (4)
  1. VIAGRA [Suspect]
     Indication: ILL-DEFINED DISORDER
  2. GLICLAZIDE (GLICLAZIDE) [Concomitant]
  3. HYPNOTIC AND SEDATIVES [Concomitant]
  4. COLLYRIUM (SALICYLATE SODIUM, PHENAZONE, SODIUM BORATE, BORIC ACID) [Concomitant]

REACTIONS (3)
  - CARDIAC ARREST [None]
  - CHEST PAIN [None]
  - PULMONARY EMBOLISM [None]
